FAERS Safety Report 18269826 (Version 1)
Quarter: 2020Q3

REPORT INFORMATION
  Report Type: Spontaneous
  Country: NL (occurrence: NL)
  Receive Date: 20200915
  Receipt Date: 20200915
  Transmission Date: 20201103
  Serious: Yes (Hospitalization, Other)
  Sender: FDA-Public Use
  Company Number: NL-INSUD PHARMA-2008NL00209

PATIENT

DRUGS (4)
  1. TESTOSTERONE. [Suspect]
     Active Substance: TESTOSTERONE
     Indication: MUSCLE BUILDING THERAPY
     Dosage: 250 MILLIGRAM INJECTIONS TWICE A WEEK
     Route: 030
  2. TADALAFIL. [Concomitant]
     Active Substance: TADALAFIL
     Indication: MUSCLE BUILDING THERAPY
     Dosage: UNK, QD
  3. MESTEROLONE [Suspect]
     Active Substance: MESTEROLONE
     Indication: MUSCLE BUILDING THERAPY
     Dosage: UNK, QD
  4. EXEMESTANE. [Suspect]
     Active Substance: EXEMESTANE
     Indication: MUSCLE BUILDING THERAPY
     Dosage: UNK, QD

REACTIONS (23)
  - Cholestasis [Recovered/Resolved]
  - Cholestatic pruritus [Recovered/Resolved]
  - Scab [Recovered/Resolved]
  - Acute kidney injury [Recovered/Resolved]
  - Nausea [Recovered/Resolved]
  - Cholestatic liver injury [Recovered/Resolved]
  - Chromaturia [Recovered/Resolved]
  - Insomnia [Recovered/Resolved]
  - Mental disorder [Recovered/Resolved]
  - Decreased appetite [Recovered/Resolved]
  - Abdominal tenderness [Recovered/Resolved]
  - Faeces discoloured [Recovered/Resolved]
  - Renal impairment [Recovered/Resolved]
  - Drug-induced liver injury [Recovered/Resolved]
  - Nephropathy [Recovered/Resolved]
  - Renal failure [Recovered/Resolved]
  - Malaise [Recovered/Resolved]
  - Hepatic function abnormal [Recovered/Resolved]
  - Portal tract inflammation [Recovered/Resolved]
  - Cholelithiasis [Recovered/Resolved]
  - Drug abuser [Recovered/Resolved]
  - Jaundice [Recovered/Resolved]
  - Scratch [Recovered/Resolved]
